FAERS Safety Report 8551625-3 (Version None)
Quarter: 2012Q3

REPORT INFORMATION
  Report Type: 
  Country: None (occurrence: None)
  Receive Date: 20120724
  Receipt Date: 20120724
  Transmission Date: 20120928
  Serious: Yes (Hospitalization)
  Sender: FDA-Public Use
  Company Number: None

PATIENT
  Sex: Female
  Weight: 60.3284 kg

DRUGS (13)
  1. ALLOPURINOL [Concomitant]
  2. CHOLECALCIFEROL [Concomitant]
  3. PRADAXA [Suspect]
     Indication: PROPHYLAXIS
     Dosage: 75 MG BIO ORAL
     Route: 048
     Dates: start: 20110727, end: 20120702
  4. PRADAXA [Suspect]
     Indication: ATRIAL FIBRILLATION
     Dosage: 75 MG BIO ORAL
     Route: 048
     Dates: start: 20110727, end: 20120702
  5. CYTOMEL [Concomitant]
  6. LEVOXYL [Concomitant]
  7. AMIODARONE HCL [Concomitant]
  8. LIPITOR [Concomitant]
  9. FUROSEMIDE [Concomitant]
  10. JANUVIA [Concomitant]
  11. WELCHOL [Concomitant]
  12. FERROUS SULFATE TAB [Concomitant]
  13. POTASSIUM CHLORIDE [Concomitant]

REACTIONS (1)
  - GASTROINTESTINAL HAEMORRHAGE [None]
